FAERS Safety Report 5576337-X (Version None)
Quarter: 2007Q4

REPORT INFORMATION
  Report Type: 
  Country: None (occurrence: None)
  Receive Date: 20071228
  Receipt Date: 20071218
  Transmission Date: 20080405
  Serious: Yes (Disabling)
  Sender: FDA-Public Use
  Company Number: BE-ROCHE-537754

PATIENT
  Age: 39 Year
  Sex: Female

DRUGS (4)
  1. RIVOTRIL [Suspect]
     Indication: DRUG DETOXIFICATION
     Dosage: DOSAGE: 1-1-2 MG DAILY.
     Route: 048
     Dates: start: 20070315
  2. ZYPREXA [Concomitant]
     Indication: DRUG DETOXIFICATION
     Route: 048
     Dates: start: 20071015, end: 20071027
  3. WINE [Concomitant]
  4. GINSENG [Concomitant]

REACTIONS (4)
  - DISTURBANCE IN ATTENTION [None]
  - HEADACHE [None]
  - MUSCLE RIGIDITY [None]
  - MYALGIA [None]
